FAERS Safety Report 11227210 (Version 1)
Quarter: 2015Q2

REPORT INFORMATION
  Report Type: Report from Study
  Country: US (occurrence: US)
  Receive Date: 20150630
  Receipt Date: 20150630
  Transmission Date: 20150821
  Serious: Yes (Other)
  Sender: FDA-Public Use
  Company Number: PHEH2015US011319

PATIENT
  Age: 54 Year
  Sex: Female

DRUGS (5)
  1. OXYBUTYNIN [Concomitant]
     Active Substance: OXYBUTYNIN
     Indication: MICTURITION URGENCY
     Dosage: UNK
     Route: 065
     Dates: end: 20150619
  2. OXYBUTYNIN [Concomitant]
     Active Substance: OXYBUTYNIN
     Indication: POLLAKIURIA
  3. OXYBUTYNIN [Concomitant]
     Active Substance: OXYBUTYNIN
     Indication: URINARY INCONTINENCE
  4. GILENYA [Suspect]
     Active Substance: FINGOLIMOD HYDROCHLORIDE
     Indication: MULTIPLE SCLEROSIS
     Dosage: 0.5 MG, QD
     Route: 048
     Dates: start: 20150610
  5. BENADRYL ALLERGY [Concomitant]
     Active Substance: DIPHENHYDRAMINE HYDROCHLORIDE
     Indication: HYPERSENSITIVITY
     Dosage: UNK
     Route: 065

REACTIONS (10)
  - Heart rate decreased [Recovering/Resolving]
  - Fall [Unknown]
  - Scratch [Unknown]
  - Hypotension [Recovering/Resolving]
  - Dizziness [Unknown]
  - Decreased appetite [Unknown]
  - Electrocardiogram QT prolonged [Unknown]
  - Atrioventricular block first degree [Not Recovered/Not Resolved]
  - Heart rate decreased [Recovered/Resolved]
  - Fluid intake reduced [Unknown]

NARRATIVE: CASE EVENT DATE: 20150610
